FAERS Safety Report 22045185 (Version 1)
Quarter: 2023Q1

REPORT INFORMATION
  Report Type: Spontaneous
  Country: US (occurrence: US)
  Receive Date: 20230228
  Receipt Date: 20230228
  Transmission Date: 20230418
  Serious: Yes (Hospitalization, Other)
  Sender: FDA-Public Use
  Company Number: US-BRAINTREE LABORATORIES, INC.-2023BTE00060

PATIENT
  Age: 70 Year
  Sex: Female
  Weight: 80.726 kg

DRUGS (16)
  1. SUPREP BOWEL PREP [Suspect]
     Active Substance: MAGNESIUM SULFATE\POTASSIUM SULFATE\SODIUM SULFATE
     Indication: Colonoscopy
     Dosage: } 1 X 6 OZ. BOTTLE, 1X
     Route: 048
     Dates: start: 20230124, end: 20230125
  2. UNSPECIFIED ANTI-NAUSEA MEDICATION [Concomitant]
     Dosage: UNK
     Dates: start: 20230124, end: 20230125
  3. CLARITIN [Concomitant]
     Active Substance: LORATADINE
     Dosage: 10 MG, 1X/DAY
     Route: 048
  4. KLONOPIN [Concomitant]
     Active Substance: CLONAZEPAM
     Dosage: 1 MG, 1X/DAY AT BEDTIME
     Route: 048
  5. EFFEXOR XR [Concomitant]
     Active Substance: VENLAFAXINE HYDROCHLORIDE
     Dosage: 150 MG, 1X/DAY
     Route: 048
  6. PROGESTERONE [Concomitant]
     Active Substance: PROGESTERONE
     Dosage: 0.25 MG, 1X/DAY
     Route: 048
  7. ESTROGENS [Concomitant]
     Active Substance: ESTROGENS
     Dosage: 0.25 MG, 1X/DAY
     Route: 048
  8. MONTELUKAST [Concomitant]
     Active Substance: MONTELUKAST SODIUM
     Dosage: 10 MG, 1X/DAY
     Route: 048
  9. VITAMIN D NOS [Concomitant]
     Active Substance: VITAMIN D NOS
  10. SYNTHROID [Concomitant]
     Active Substance: LEVOTHYROXINE SODIUM
     Dosage: 75 ?G, 1X/DAY
     Route: 048
  11. PEPCID AC [Concomitant]
     Active Substance: FAMOTIDINE
     Dosage: 10 MG, 1X/DAY AT BEDTIME
     Route: 048
  12. TRELEGY ELLIPTA [Concomitant]
     Active Substance: FLUTICASONE FUROATE\UMECLIDINIUM BROMIDE\VILANTEROL TRIFENATATE
     Dosage: 1 INHALATION DAILY
  13. FUROSEMIDE [Concomitant]
     Active Substance: FUROSEMIDE
     Indication: Swelling
     Dosage: 20 MG, 1X/DAY AS NEEDED
     Route: 048
  14. HYDROCORTISONE [Concomitant]
     Active Substance: HYDROCORTISONE
     Dosage: 20 MG, 1X/DAY
     Route: 048
  15. MEDROXYPROGESTERONE [Concomitant]
     Active Substance: MEDROXYPROGESTERONE
     Dosage: 2.5 MG, 1X/DAY
     Route: 048
  16. MELATONIN [Concomitant]
     Active Substance: MELATONIN
     Dosage: 3 MG, 1X/DAY AT BEDTIME
     Route: 048

REACTIONS (10)
  - Diverticulitis [Recovering/Resolving]
  - Clostridium difficile colitis [Not Recovered/Not Resolved]
  - Intestinal perforation [Not Recovered/Not Resolved]
  - Dehydration [Unknown]
  - Chromaturia [Unknown]
  - Functional gastrointestinal disorder [Not Recovered/Not Resolved]
  - Abdominal discomfort [Not Recovered/Not Resolved]
  - Micturition disorder [Recovering/Resolving]
  - Hypokalaemia [Recovered/Resolved]
  - Vomiting [Recovered/Resolved]

NARRATIVE: CASE EVENT DATE: 20230101
